FAERS Safety Report 20737912 (Version 4)
Quarter: 2022Q3

REPORT INFORMATION
  Report Type: Spontaneous
  Country: US (occurrence: US)
  Receive Date: 20220422
  Receipt Date: 20220810
  Transmission Date: 20221026
  Serious: Yes (Hospitalization, Other)
  Sender: FDA-Public Use
  Company Number: US-BEH-2022144349

PATIENT
  Age: 72 Year
  Sex: Female

DRUGS (20)
  1. HIZENTRA [Suspect]
     Active Substance: HUMAN IMMUNOGLOBULIN G
     Indication: Transient ischaemic attack
     Dosage: 14 GRAM, QOW
     Route: 058
     Dates: start: 20220413
  2. HIZENTRA [Suspect]
     Active Substance: HUMAN IMMUNOGLOBULIN G
     Dosage: 14 GRAM, QOW
     Route: 058
     Dates: start: 20210117
  3. HIZENTRA [Suspect]
     Active Substance: HUMAN IMMUNOGLOBULIN G
     Dosage: 14 GRAM, QOW
     Route: 058
     Dates: start: 20210117
  4. HIZENTRA [Suspect]
     Active Substance: HUMAN IMMUNOGLOBULIN G
     Dosage: 14 GRAM, QOW
     Route: 058
     Dates: start: 202002
  5. OXYCODONE HYDROCHLORIDE [Concomitant]
     Active Substance: OXYCODONE HYDROCHLORIDE
     Dosage: 30 MILLIGRAM
     Route: 065
  6. OXYCODONE HYDROCHLORIDE [Concomitant]
     Active Substance: OXYCODONE HYDROCHLORIDE
     Dosage: 5 MILLIGRAM
     Route: 065
  7. ASPIRIN [Concomitant]
     Active Substance: ASPIRIN
     Dosage: 325 MILLIGRAM
     Route: 065
  8. BIOTIN [BIOTIN;CALCIUM PHOSPHATE DIBASIC] [Concomitant]
     Dosage: 10000 MICROGRAM
     Route: 065
  9. CALCIUM [Concomitant]
     Active Substance: CALCIUM
     Dosage: 500 MILLIGRAM
  10. CEPHALEXIN [Concomitant]
     Active Substance: CEPHALEXIN
     Dosage: 250 MILLIGRAM
     Route: 065
  11. CLONAZEPAM [Concomitant]
     Active Substance: CLONAZEPAM
     Dosage: 2 MILLIGRAM
     Route: 065
  12. LAMOTRIGINE [Concomitant]
     Active Substance: LAMOTRIGINE
     Dosage: 50 MILLIGRAM
     Route: 065
  13. LAMOTRIGINE [Concomitant]
     Active Substance: LAMOTRIGINE
     Dosage: 150 MILLIGRAM
     Route: 065
  14. METHENAMINE [Concomitant]
     Active Substance: METHENAMINE
     Dosage: 0.5 GRAM
     Route: 065
  15. VITAMINS [Concomitant]
     Active Substance: VITAMINS
     Dosage: 0.5 MILLIGRAM
     Route: 065
  16. OMEPRAZOLE [Concomitant]
     Active Substance: OMEPRAZOLE
     Dosage: 20 MILLIGRAM
     Route: 065
  17. PREDNISONE [Concomitant]
     Active Substance: PREDNISONE
     Dosage: 5 MILLIGRAM
     Route: 065
  18. VITAMIN D3 [Concomitant]
     Active Substance: CHOLECALCIFEROL
     Dosage: 25 MICROGRAM
     Route: 065
  19. XANAX [Concomitant]
     Active Substance: ALPRAZOLAM
     Dosage: 0.5 MICROGRAM
     Route: 065
  20. LAMOTRIGINE [Concomitant]
     Active Substance: LAMOTRIGINE
     Dosage: 50 MILLIGRAM

REACTIONS (16)
  - Fall [Unknown]
  - Upper limb fracture [Unknown]
  - Malaise [Unknown]
  - No adverse event [Unknown]
  - Off label use [Unknown]
  - Fatigue [Unknown]
  - Feeling jittery [Recovered/Resolved]
  - Diarrhoea [Unknown]
  - Feeling jittery [Recovered/Resolved]
  - Somnolence [Recovered/Resolved]
  - Upper limb fracture [Unknown]
  - Dizziness [Recovered/Resolved]
  - Headache [Recovered/Resolved]
  - Feeling cold [Recovered/Resolved]
  - Humerus fracture [Unknown]
  - Pain [Unknown]

NARRATIVE: CASE EVENT DATE: 20220413
